FAERS Safety Report 5290232-5 (Version None)
Quarter: 2007Q2

REPORT INFORMATION
  Report Type: 
  Country: None (occurrence: None)
  Receive Date: 20070402
  Receipt Date: 20070207
  Transmission Date: 20071010
  Serious: Yes (Other)
  Sender: FDA-Public Use
  Company Number: 2007SP005543

PATIENT
  Age: 77 Year
  Sex: Female

DRUGS (6)
  1. CLARITIN-D 24 HOUR [Suspect]
     Indication: NASAL CONGESTION
  2. CLARITIN-D 24 HOUR [Suspect]
     Indication: POSTNASAL DRIP
  3. MUCINEX [Concomitant]
  4. VITAMINS [Concomitant]
  5. THYROID TAB [Concomitant]
  6. EVISTA [Concomitant]

REACTIONS (1)
  - BLOOD PRESSURE INCREASED [None]
